FAERS Safety Report 4284269-2 (Version None)
Quarter: 2004Q1

REPORT INFORMATION
  Report Type: 
  Country: None (occurrence: None)
  Receive Date: 20040202
  Receipt Date: 20040202
  Transmission Date: 20041129
  Serious: Yes (Hospitalization)
  Sender: FDA-Public Use
  Company Number: None

PATIENT
  Age: 14 Month
  Sex: Male
  Weight: 9.54 kg

DRUGS (3)
  1. UNASYN [Suspect]
     Indication: ORAL INFECTION
     Dosage: 0.375G Q6H INTRAVENOUS
     Route: 042
     Dates: start: 20031121, end: 20031122
  2. KCL TAB [Concomitant]
  3. TYLENOL (CAPLET) [Concomitant]

REACTIONS (3)
  - DERMATITIS BULLOUS [None]
  - INJECTION SITE REACTION [None]
  - OEDEMA PERIPHERAL [None]
